FAERS Safety Report 6315975-3 (Version None)
Quarter: 2009Q3

REPORT INFORMATION
  Report Type: 
  Country: None (occurrence: None)
  Receive Date: 20090819
  Receipt Date: 20090819
  Transmission Date: 20100115
  Serious: Yes (Life-Threatening, Other)
  Sender: FDA-Public Use
  Company Number: None

PATIENT
  Age: 73 Year
  Sex: Male
  Weight: 65.9 kg

DRUGS (6)
  1. VICODIN [Suspect]
     Dosage: ONE QID PO
     Route: 048
     Dates: start: 20070411, end: 20070418
  2. VICODIN ES [Suspect]
     Dosage: ONE QID PO
     Route: 048
     Dates: start: 20070705, end: 20080108
  3. IBUPROFEN [Concomitant]
  4. DILANTIN [Concomitant]
  5. ASPIRIN [Concomitant]
  6. FULIOCSINE NOSE DROPS [Concomitant]

REACTIONS (2)
  - ACCIDENT [None]
  - MEMORY IMPAIRMENT [None]
